FAERS Safety Report 4852347-2 (Version None)
Quarter: 2005Q4

REPORT INFORMATION
  Report Type: 
  Country: None (occurrence: None)
  Receive Date: 20051123
  Receipt Date: 20050316
  Transmission Date: 20060501
  Serious: Yes (Hospitalization)
  Sender: FDA-Public Use
  Company Number: US-JNJFOC-20050402257

PATIENT
  Age: 87 Year
  Sex: Male
  Weight: 63.5 kg

DRUGS (13)
  1. LEVAQUIN [Suspect]
     Indication: URINARY TRACT INFECTION
     Dosage: 250 MG, 1 IN 1 DAY, INTRAVENOUS
     Route: 042
     Dates: start: 20050221, end: 20050226
  2. PROCRIT [Concomitant]
  3. COUMADIN [Concomitant]
  4. PREDNISONE [Concomitant]
  5. NORVASC [Concomitant]
  6. METOPROLOL (METOPROLOL) [Concomitant]
  7. ZOCOR [Concomitant]
  8. FOSAMAX [Concomitant]
  9. DEMADEX [Concomitant]
  10. LOPRESSOR [Concomitant]
  11. LIPITOR [Concomitant]
  12. POTASSIUM (POTASSIUM) [Concomitant]
  13. ROCALTROL [Concomitant]

REACTIONS (1)
  - NEPHRITIS INTERSTITIAL [None]
